FAERS Safety Report 16169376 (Version 1)
Quarter: 2019Q2

REPORT INFORMATION
  Report Type: Report from Study
  Country: US (occurrence: US)
  Receive Date: 20190408
  Receipt Date: 20190408
  Transmission Date: 20190711
  Serious: Yes (Hospitalization, Other)
  Sender: FDA-Public Use
  Company Number: US-JNJFOC-20190406768

PATIENT
  Age: 67 Year
  Sex: Male

DRUGS (13)
  1. IRBESARTAN. [Concomitant]
     Active Substance: IRBESARTAN
  2. CAMELLIA SINENSIS [Concomitant]
     Active Substance: GREEN TEA LEAF
  3. FERRIC CITRATE [Concomitant]
     Active Substance: TETRAFERRIC TRICITRATE DECAHYDRATE
  4. MULTIVITAMINS [Concomitant]
     Active Substance: VITAMINS
  5. DOCUSATE SODIUM. [Concomitant]
     Active Substance: DOCUSATE SODIUM
  6. CALCITRIOL. [Concomitant]
     Active Substance: CALCITRIOL
  7. VIAGRA [Concomitant]
     Active Substance: SILDENAFIL CITRATE
  8. KENALOG [Concomitant]
     Active Substance: TRIAMCINOLONE ACETONIDE
  9. ASPIR LOW [Concomitant]
     Active Substance: ASPIRIN
  10. IMBRUVICA [Suspect]
     Active Substance: IBRUTINIB
     Indication: CHRONIC LYMPHOCYTIC LEUKAEMIA
     Route: 048
     Dates: start: 20180329
  11. SENSIPAR [Concomitant]
     Active Substance: CINACALCET HYDROCHLORIDE
  12. METOPROLOL SUCCINATE. [Concomitant]
     Active Substance: METOPROLOL SUCCINATE
  13. ALLOPURINOL. [Concomitant]
     Active Substance: ALLOPURINOL

REACTIONS (4)
  - Renal failure [Unknown]
  - Medical induction of coma [Unknown]
  - Herpes zoster [Unknown]
  - Overdose [Unknown]

NARRATIVE: CASE EVENT DATE: 20190305
